FAERS Safety Report 8340493-0 (Version None)
Quarter: 2012Q2

REPORT INFORMATION
  Report Type: 
  Country: None (occurrence: None)
  Receive Date: 20120507
  Receipt Date: 20090908
  Transmission Date: 20120825
  Serious: Yes (Disabling, Other)
  Sender: FDA-Public Use
  Company Number: US-TEVA-2009008878

PATIENT
  Sex: Female
  Weight: 96.248 kg

DRUGS (17)
  1. ZOFRAN [Concomitant]
  2. CIPROFLOXACIN HCL [Concomitant]
     Dates: start: 20090626
  3. ACETAMINOPHEN [Concomitant]
  4. ALLOPURINOL [Concomitant]
     Dates: start: 20090617
  5. BENADRYL [Concomitant]
  6. TREANDA [Suspect]
     Indication: ACUTE PROMYELOCYTIC LEUKAEMIA
     Dosage: 15 MILLIGRAM;
     Route: 042
     Dates: start: 20090617
  7. MAGNESIUM OXIDE [Concomitant]
  8. IMODIUM [Concomitant]
  9. CHLORHEXIDINE GLUCONATE [Concomitant]
  10. MORPHINE [Concomitant]
  11. AMBIEN [Concomitant]
  12. POTASSIUM CHLORIDE [Concomitant]
  13. SENNOKOT [Concomitant]
  14. TREANDA [Suspect]
     Dosage: DOSE ADJUSTED (DOSAGE NOT PROVIDED)
     Route: 042
     Dates: start: 20090101
  15. NORCO [Concomitant]
  16. ROBITUSSIN DM [Concomitant]
  17. DOCUSATE SODIUM [Concomitant]

REACTIONS (1)
  - NEUTROPENIA [None]
